FAERS Safety Report 8500913-5 (Version None)
Quarter: 2012Q3

REPORT INFORMATION
  Report Type: 
  Country: None (occurrence: None)
  Receive Date: 20120703
  Receipt Date: 20120703
  Transmission Date: 20120928
  Serious: Yes (Hospitalization)
  Sender: FDA-Public Use
  Company Number: None

PATIENT
  Age: 47 Year
  Sex: Male
  Weight: 100 kg

DRUGS (1)
  1. CARBAMAZEPINE [Suspect]
     Dosage: 200 MG BID PO
     Route: 048
     Dates: start: 20120208, end: 20120309

REACTIONS (2)
  - PYREXIA [None]
  - ACUTE GENERALISED EXANTHEMATOUS PUSTULOSIS [None]
